FAERS Safety Report 5959584-4 (Version None)
Quarter: 2008Q4

REPORT INFORMATION
  Report Type: 
  Country: None (occurrence: None)
  Receive Date: 20081117
  Receipt Date: 20081007
  Transmission Date: 20090506
  Serious: Yes (Other)
  Sender: FDA-Public Use
  Company Number: 001#1#2008-00567

PATIENT
  Age: 51 Year
  Sex: Male

DRUGS (1)
  1. NEUPRO [Suspect]
     Dosage: 8 MG/24H (8 MG/24H 1 IN 1 DAY(S)) TRANSDERMAL
     Route: 062
     Dates: start: 20070201

REACTIONS (4)
  - DRUG INEFFECTIVE [None]
  - EXPIRED DRUG ADMINISTERED [None]
  - TREMOR [None]
  - WITHDRAWAL SYNDROME [None]
